FAERS Safety Report 10100622 (Version 1)
Quarter: 2014Q2

REPORT INFORMATION
  Report Type: Spontaneous
  Country: US (occurrence: US)
  Receive Date: 20140423
  Receipt Date: 20140423
  Transmission Date: 20141212
  Serious: No
  Sender: FDA-Public Use
  Company Number: US-009507513-1404USA011704

PATIENT
  Sex: Female

DRUGS (2)
  1. MIRALAX [Suspect]
     Indication: CONSTIPATION
     Dosage: UNKNOWN
     Route: 048
  2. MIRALAX [Suspect]
     Indication: ABDOMINAL PAIN

REACTIONS (4)
  - Abdominal pain [Unknown]
  - Nausea [Unknown]
  - Incorrect drug administration duration [Unknown]
  - Off label use [Unknown]
